FAERS Safety Report 7303847-7 (Version None)
Quarter: 2011Q1

REPORT INFORMATION
  Report Type: 
  Country: None (occurrence: None)
  Receive Date: 20110221
  Receipt Date: 20110215
  Transmission Date: 20110831
  Serious: Yes (Death)
  Sender: FDA-Public Use
  Company Number: A0903339A

PATIENT
  Age: 82 Year
  Sex: Male

DRUGS (15)
  1. PROMACTA [Suspect]
     Dosage: 50MG PER DAY
     Route: 048
     Dates: start: 20100101
  2. LASIX [Concomitant]
  3. HYDROXYCHLOROQUINE [Concomitant]
  4. BUPROPION [Concomitant]
  5. FORADIL [Concomitant]
  6. POTASSIUM CL [Concomitant]
  7. DIGOXIN [Concomitant]
  8. ACYCLOVIR [Concomitant]
  9. UNKNOWN [Concomitant]
  10. CARVEDILOL [Concomitant]
  11. TAMSULOSIN [Concomitant]
  12. OMEPRAZOLE [Concomitant]
  13. THEOPHYLLINE [Concomitant]
  14. DUONEB [Concomitant]
  15. AVODART [Concomitant]

REACTIONS (1)
  - DEATH [None]
